FAERS Safety Report 9891817 (Version 2)
Quarter: 2014Q1

REPORT INFORMATION
  Report Type: Spontaneous
  Country: ES (occurrence: ES)
  Receive Date: 20140212
  Receipt Date: 20140304
  Transmission Date: 20141002
  Serious: Yes (Death, Other)
  Sender: FDA-Public Use
  Company Number: ES-PFIZER INC-2014038276

PATIENT
  Age: 77 Year
  Sex: Female

DRUGS (7)
  1. PANTOPRAZOLE [Suspect]
     Dosage: 40 MG, 1X/DAY
     Route: 048
     Dates: start: 20131115, end: 20131120
  2. CIPROFLOXACIN [Suspect]
     Dosage: 400 MG, 2X/DAY
     Route: 042
     Dates: start: 20131115, end: 20131122
  3. VANCOMYCIN HCL [Suspect]
     Indication: ENDOCARDITIS
     Dosage: 1 G, UNK
     Route: 042
     Dates: start: 20131115, end: 20131126
  4. NITROGLYCERIN [Suspect]
     Dosage: 10 MG, DAILY
     Route: 062
     Dates: start: 20131115, end: 20131130
  5. SEGURIL [Suspect]
     Dosage: 40 MG, 4X/DAY
     Dates: start: 20131115
  6. RIFAMPICIN [Suspect]
     Dosage: 300 MG, 2X/DAY
     Route: 048
     Dates: start: 20131123, end: 20131124
  7. GENTAMYCIN [Suspect]
     Dosage: 60 MG, 3X/DAY
     Route: 042
     Dates: start: 20131115, end: 20131126

REACTIONS (2)
  - Cardiac failure [Fatal]
  - Linear IgA disease [Unknown]
